FAERS Safety Report 19964665 (Version 1)
Quarter: 2021Q4

REPORT INFORMATION
  Report Type: Spontaneous
  Country: HR (occurrence: HR)
  Receive Date: 20211018
  Receipt Date: 20211018
  Transmission Date: 20220303
  Serious: Yes (Life-Threatening, Hospitalization, Other)
  Sender: FDA-Public Use
  Company Number: None

PATIENT
  Age: 63 Year
  Sex: Female

DRUGS (1)
  1. ANASTROZOLE [Suspect]
     Active Substance: ANASTROZOLE
     Indication: Breast cancer
     Dosage: 1 MILLIGRAM, QD, 1 MG DAILY
     Route: 048
     Dates: start: 20200318, end: 20200711

REACTIONS (5)
  - Abdominal pain [Recovering/Resolving]
  - Thrombotic thrombocytopenic purpura [Recovering/Resolving]
  - Haematochezia [Recovering/Resolving]
  - Haemolytic uraemic syndrome [Recovering/Resolving]
  - Diarrhoea [Recovering/Resolving]

NARRATIVE: CASE EVENT DATE: 20200711
